FAERS Safety Report 5476287-3 (Version None)
Quarter: 2007Q4

REPORT INFORMATION
  Report Type: 
  Country: None (occurrence: None)
  Receive Date: 20071003
  Receipt Date: 20070917
  Transmission Date: 20080405
  Serious: Yes (Death, Hospitalization)
  Sender: FDA-Public Use
  Company Number: US-PFIZER INC-2006072126

PATIENT
  Sex: Female
  Weight: 65.3 kg

DRUGS (11)
  1. ATORVASTATIN CALCIUM [Suspect]
     Indication: CORONARY ARTERY DISEASE
     Dosage: DAILY DOSE:40MG
     Route: 048
     Dates: start: 20050816, end: 20050921
  2. ATORVASTATIN CALCIUM [Suspect]
     Dosage: DAILY DOSE:40MG
     Route: 048
     Dates: start: 20050922, end: 20060601
  3. NEURONTIN [Concomitant]
     Route: 048
  4. HYDROCODONE [Concomitant]
     Route: 065
  5. GLUCOPHAGE [Concomitant]
     Route: 048
  6. PROMETHAZINE DM [Concomitant]
     Indication: ASTHMA
     Route: 048
  7. ALBUTEROL [Concomitant]
     Route: 055
  8. OTHER RESPIRATORY SYSTEM PRODUCTS [Concomitant]
     Route: 055
  9. VERAPAMIL [Concomitant]
     Route: 048
  10. MAVIK [Concomitant]
     Route: 048
  11. HUMULIN R [Concomitant]
     Dosage: TEXT:75/25
     Route: 058

REACTIONS (2)
  - CEREBROVASCULAR ACCIDENT [None]
  - DEATH [None]
